FAERS Safety Report 13276642 (Version 1)
Quarter: 2017Q1

REPORT INFORMATION
  Report Type: Report from Study
  Country: US (occurrence: US)
  Receive Date: 20170228
  Receipt Date: 20170228
  Transmission Date: 20170428
  Serious: Yes (Other)
  Sender: FDA-Public Use
  Company Number: US-GILEAD-2017-0259364

PATIENT
  Age: 69 Year
  Sex: Female

DRUGS (4)
  1. WARFARIN [Concomitant]
     Active Substance: WARFARIN
  2. AMBRISENTAN [Suspect]
     Active Substance: AMBRISENTAN
     Indication: PRODUCT USED FOR UNKNOWN INDICATION
     Dosage: 10 MG, QD
     Route: 065
  3. DILTIAZEM. [Concomitant]
     Active Substance: DILTIAZEM
  4. OXYGEN. [Concomitant]
     Active Substance: OXYGEN

REACTIONS (3)
  - Catheterisation cardiac [Unknown]
  - Sjogren^s syndrome [Not Recovered/Not Resolved]
  - Fatigue [Not Recovered/Not Resolved]
